FAERS Safety Report 7603527-4 (Version None)
Quarter: 2011Q3

REPORT INFORMATION
  Report Type: 
  Country: None (occurrence: None)
  Receive Date: 20110712
  Receipt Date: 20110630
  Transmission Date: 20111222
  Serious: Yes (Hospitalization)
  Sender: FDA-Public Use
  Company Number: US-CELGENEUS-163-AB007-11053813

PATIENT
  Sex: Male
  Weight: 56.8 kg

DRUGS (15)
  1. METFORMIN HCL [Concomitant]
     Indication: DIABETES MELLITUS
     Dosage: 500 MILLIGRAM
     Route: 048
     Dates: start: 20101001
  2. NEUPOGEN [Concomitant]
     Indication: NEUTROPENIA
     Dosage: 480 MICROGRAM
     Route: 058
     Dates: start: 20110302
  3. ABRAXANE [Suspect]
     Dosage: 125 MILLIGRAM/SQ. METER
     Route: 051
     Dates: end: 20110511
  4. METOPROLOL TARTRATE [Concomitant]
     Indication: HYPERTENSION
     Dosage: 100 MILLIGRAM
     Route: 048
     Dates: start: 20070101
  5. GEMCITABINE [Suspect]
     Dosage: 1000 MILLIGRAM/SQ. METER
     Route: 065
     Dates: start: 20110202
  6. GEMCITABINE [Suspect]
     Dosage: 600 MILLIGRAM/SQ. METER
     Route: 065
     Dates: end: 20110511
  7. MORPHINE [Concomitant]
     Indication: PAIN
     Dosage: 15 MILLIGRAM
     Route: 048
     Dates: start: 20100101
  8. LASIX [Concomitant]
     Dosage: 20 MILLIGRAM
     Route: 048
     Dates: start: 20110427
  9. POTASSIUM CHLORIDE [Concomitant]
     Indication: SUPPLEMENTATION THERAPY
     Route: 048
     Dates: start: 20110427
  10. ABRAXANE [Suspect]
     Dosage: 125 MILLIGRAM/SQ. METER
     Route: 065
     Dates: start: 20110202
  11. SIMVASTATIN [Concomitant]
     Dosage: 40 MILLIGRAM
     Route: 048
     Dates: start: 20070101
  12. COMPAZINE [Concomitant]
     Indication: NAUSEA
     Dosage: 10 MILLIGRAM
     Route: 048
     Dates: start: 20110201
  13. FOSAMAX [Concomitant]
     Indication: OSTEOPOROSIS
     Dosage: 5 MILLIGRAM
     Route: 048
     Dates: start: 20070101
  14. FLUID [Concomitant]
     Route: 051
     Dates: start: 20110501
  15. OXYCODONE HCL [Concomitant]
     Indication: PAIN
     Dosage: 1-2
     Route: 048
     Dates: start: 20100101

REACTIONS (1)
  - AUTONOMIC NERVOUS SYSTEM IMBALANCE [None]
